FAERS Safety Report 6760468-2 (Version None)
Quarter: 2010Q2

REPORT INFORMATION
  Report Type: 
  Country: None (occurrence: None)
  Receive Date: 20100608
  Receipt Date: 20100601
  Transmission Date: 20101027
  Serious: Yes (Life-Threatening, Hospitalization, Other)
  Sender: FDA-Public Use
  Company Number: FR-ABBOTT-07P-056-0377045-00

PATIENT
  Sex: Female
  Weight: 3 kg

DRUGS (2)
  1. KALETRA [Suspect]
     Indication: DRUG EXPOSURE DURING PREGNANCY
  2. LAMIVUDINE + ZIDOVUDINE [Suspect]
     Indication: DRUG EXPOSURE DURING PREGNANCY

REACTIONS (10)
  - ARRHYTHMIA [None]
  - BLOOD LACTIC ACID INCREASED [None]
  - DRUG EXPOSURE DURING PREGNANCY [None]
  - ENCEPHALOPATHY [None]
  - FOETAL DISTRESS SYNDROME [None]
  - MECONIUM IN AMNIOTIC FLUID [None]
  - MICROCEPHALY [None]
  - MULTI-ORGAN FAILURE [None]
  - NEONATAL ANOXIA [None]
  - UNEVALUABLE EVENT [None]
